FAERS Safety Report 8020067-1 (Version None)
Quarter: 2011Q4

REPORT INFORMATION
  Report Type: 
  Country: None (occurrence: None)
  Receive Date: 20111228
  Receipt Date: 20111221
  Transmission Date: 20120403
  Serious: Yes (Other)
  Sender: FDA-Public Use
  Company Number: AUR-APL-2011-06246

PATIENT
  Age: 58 Year
  Sex: Male

DRUGS (2)
  1. TICAGRELOR [Suspect]
     Indication: ACUTE MYOCARDIAL INFARCTION
     Dosage: (90 MG),ORAL
     Route: 048
     Dates: start: 20100802
  2. SIMVASTATIN [Suspect]
     Indication: PROPHYLAXIS
     Dosage: (40 MG),ORAL
     Route: 048
     Dates: start: 20110802, end: 20110804

REACTIONS (2)
  - DRUG INTERACTION [None]
  - BLOOD CREATINE PHOSPHOKINASE INCREASED [None]
